FAERS Safety Report 4566991-3 (Version None)
Quarter: 2005Q1

REPORT INFORMATION
  Report Type: 
  Country: None (occurrence: None)
  Receive Date: 20050201
  Receipt Date: 20040225
  Transmission Date: 20050727
  Serious: Yes (Other)
  Sender: FDA-Public Use
  Company Number: US-BRISTOL-MYERS SQUIBB COMPANY-12516985

PATIENT
  Age: 49 Year
  Sex: Female

DRUGS (13)
  1. STADOL [Suspect]
     Indication: MIGRAINE
     Route: 045
     Dates: start: 19960401
  2. DARVOCET [Concomitant]
  3. DEMEROL [Concomitant]
  4. HALDOL [Concomitant]
  5. TRAZODONE HCL [Concomitant]
  6. CLONIDINE [Concomitant]
     Route: 048
  7. THEOPHYLLINE [Concomitant]
  8. PHENERGAN [Concomitant]
  9. VISTARIL [Concomitant]
  10. LIMBITROL [Concomitant]
  11. VICODIN [Concomitant]
  12. ACETAMINOPHEN AND CODEINE PHOSPHATE [Concomitant]
  13. VALIUM [Concomitant]

REACTIONS (3)
  - DEPENDENCE [None]
  - HYPOAESTHESIA [None]
  - PLANTAR FASCIITIS [None]
